FAERS Safety Report 4937787-5 (Version None)
Quarter: 2006Q1

REPORT INFORMATION
  Report Type: 
  Country: None (occurrence: None)
  Receive Date: 20060309
  Receipt Date: 20050304
  Transmission Date: 20060701
  Serious: Yes (Hospitalization, Other)
  Sender: FDA-Public Use
  Company Number: US-MERCK-0503USA00930

PATIENT
  Age: 43 Year
  Sex: Female
  Weight: 82 kg

DRUGS (7)
  1. VIOXX [Suspect]
     Indication: ARTHRALGIA
     Route: 048
     Dates: start: 20000510, end: 20040504
  2. LOTREL [Concomitant]
     Route: 065
  3. PREDNISONE [Concomitant]
     Route: 065
  4. IMIPRAMINE HYDROCHLORIDE [Concomitant]
     Route: 065
  5. CELEBREX [Concomitant]
     Route: 065
  6. ASPIRIN [Concomitant]
     Route: 065
     Dates: start: 20000101
  7. BEXTRA [Concomitant]
     Route: 065

REACTIONS (46)
  - ACUTE PRERENAL FAILURE [None]
  - ANXIETY DISORDER [None]
  - BLOOD CHOLESTEROL INCREASED [None]
  - BLOOD TRIGLYCERIDES INCREASED [None]
  - BRADYCARDIA [None]
  - CARDIAC FAILURE CONGESTIVE [None]
  - CARDIOMYOPATHY [None]
  - CHEST PAIN [None]
  - CHILLS [None]
  - CHRONIC FATIGUE SYNDROME [None]
  - COLONIC POLYP [None]
  - CONGESTIVE CARDIOMYOPATHY [None]
  - DIABETES MELLITUS NON-INSULIN-DEPENDENT [None]
  - DIZZINESS [None]
  - DYSPEPSIA [None]
  - DYSPNOEA [None]
  - DYSPNOEA EXERTIONAL [None]
  - GASTROOESOPHAGEAL REFLUX DISEASE [None]
  - HAEMATURIA [None]
  - HAEMORRHOIDS [None]
  - HEADACHE [None]
  - HEART RATE IRREGULAR [None]
  - HYPERGLYCAEMIA [None]
  - HYPERLIPIDAEMIA [None]
  - HYPERTENSION [None]
  - HYPERTENSIVE CARDIOMYOPATHY [None]
  - HYPOTENSION [None]
  - IRON DEFICIENCY [None]
  - MICTURITION URGENCY [None]
  - MUSCULOSKELETAL CHEST PAIN [None]
  - MYOCARDIAL INFARCTION [None]
  - NON-CARDIAC CHEST PAIN [None]
  - PALPITATIONS [None]
  - PRODUCTIVE COUGH [None]
  - PULMONARY OEDEMA [None]
  - SINUS CONGESTION [None]
  - SLEEP APNOEA SYNDROME [None]
  - SUPRAVENTRICULAR EXTRASYSTOLES [None]
  - SYNCOPE [None]
  - UPPER RESPIRATORY TRACT INFECTION [None]
  - UTERINE PROLAPSE [None]
  - VENTRICULAR DYSFUNCTION [None]
  - VENTRICULAR EXTRASYSTOLES [None]
  - VERTIGO [None]
  - VERTIGO POSITIONAL [None]
  - VISUAL DISTURBANCE [None]
